FAERS Safety Report 22135246 (Version 1)
Quarter: 2023Q1

REPORT INFORMATION
  Report Type: Report from Study
  Country: IT (occurrence: IT)
  Receive Date: 20230324
  Receipt Date: 20230324
  Transmission Date: 20230418
  Serious: Yes (Other)
  Sender: FDA-Public Use
  Company Number: None

PATIENT
  Age: 65 Year
  Sex: Male

DRUGS (2)
  1. NORVASC [Suspect]
     Active Substance: AMLODIPINE BESYLATE
     Indication: Product used for unknown indication
     Dosage: 10 MILLIGRAM (10 MG X 30 TABLETS)
     Route: 065
  2. EN [Suspect]
     Active Substance: DELORAZEPAM
     Indication: Product used for unknown indication
     Dosage: 1 BOTTLE
     Route: 065

REACTIONS (2)
  - Bradycardia [Recovering/Resolving]
  - Drug abuse [Recovered/Resolved]

NARRATIVE: CASE EVENT DATE: 20230202
